FAERS Safety Report 12266845 (Version 2)
Quarter: 2016Q2

REPORT INFORMATION
  Report Type: Spontaneous
  Country: US (occurrence: US)
  Receive Date: 20160414
  Receipt Date: 20160617
  Transmission Date: 20160815
  Serious: Yes (Hospitalization)
  Sender: FDA-Public Use
  Company Number: US-BAYER-2016-068173

PATIENT
  Age: 57 Year
  Sex: Female

DRUGS (1)
  1. GADAVIST [Suspect]
     Active Substance: GADOBUTROL
     Indication: NUCLEAR MAGNETIC RESONANCE IMAGING BRAIN
     Dosage: 18 ML, UNK
     Dates: start: 20160309, end: 20160309

REACTIONS (10)
  - Lip swelling [None]
  - Nausea [None]
  - Nasal pruritus [None]
  - Loss of consciousness [None]
  - Rash [None]
  - Type I hypersensitivity [None]
  - Dizziness [None]
  - Eye swelling [None]
  - Lip pruritus [None]
  - Ear swelling [None]
